FAERS Safety Report 4619473-4 (Version None)
Quarter: 2005Q1

REPORT INFORMATION
  Report Type: 
  Country: None (occurrence: None)
  Receive Date: 20050325
  Receipt Date: 20050321
  Transmission Date: 20050727
  Serious: Yes (Death)
  Sender: FDA-Public Use
  Company Number: PRIUSA1999009173

PATIENT
  Sex: Female

DRUGS (9)
  1. FLOXIN [Suspect]
     Indication: MATERNAL DRUGS AFFECTING FOETUS
     Route: 049
     Dates: start: 19970212
  2. PRENATAL VITAMINS [Concomitant]
  3. PRENATAL VITAMINS [Concomitant]
  4. PRENATAL VITAMINS [Concomitant]
  5. PRENATAL VITAMINS [Concomitant]
  6. PRENATAL VITAMINS [Concomitant]
  7. PRENATAL VITAMINS [Concomitant]
  8. PRENATAL VITAMINS [Concomitant]
  9. PRENATAL VITAMINS [Concomitant]
     Indication: DRUG USE FOR UNKNOWN INDICATION

REACTIONS (17)
  - BLINDNESS [None]
  - CEREBRAL PALSY [None]
  - CONGENITAL CENTRAL NERVOUS SYSTEM ANOMALY [None]
  - CONGENITAL GENITOURINARY ABNORMALITY [None]
  - CONVULSION [None]
  - DEVELOPMENTAL DELAY [None]
  - DRUG EXPOSURE DURING PREGNANCY [None]
  - ENCEPHALOPATHY [None]
  - ENDOCRINE DISORDER [None]
  - HEARING IMPAIRED [None]
  - HEMIPLEGIA TRANSIENT [None]
  - HYPOTONIA [None]
  - INFANTILE SPASMS [None]
  - MICROCEPHALY [None]
  - MILK ALLERGY [None]
  - OTITIS MEDIA [None]
  - RESPIRATORY DISORDER [None]
